FAERS Safety Report 10241841 (Version 2)
Quarter: 2014Q3

REPORT INFORMATION
  Report Type: Spontaneous
  Country: US (occurrence: US)
  Receive Date: 20140617
  Receipt Date: 20140718
  Transmission Date: 20150326
  Serious: Yes (Hospitalization)
  Sender: FDA-Public Use
  Company Number: US-GLAXOSMITHKLINE-A1076436A

PATIENT
  Age: 69 Year
  Sex: Female

DRUGS (18)
  1. BABY ASPIRIN [Concomitant]
     Active Substance: ASPIRIN
  2. LEVOTHYROXIN [Concomitant]
     Active Substance: LEVOTHYROXINE
  3. KLOR CON [Concomitant]
  4. ADVAIR HFA [Suspect]
     Active Substance: FLUTICASONE PROPIONATE\SALMETEROL XINAFOATE
     Indication: EMPHYSEMA
     Dosage: 1PUFF TWICE PER DAY
     Route: 055
  5. FUROSEMIDE. [Concomitant]
     Active Substance: FUROSEMIDE
  6. FISH OIL [Concomitant]
     Active Substance: FISH OIL
  7. RAMIPRIL. [Concomitant]
     Active Substance: RAMIPRIL
  8. MAGNESIUM OXIDE. [Concomitant]
     Active Substance: MAGNESIUM OXIDE
  9. CLEARLUNG [Concomitant]
  10. VITAMIN D [Concomitant]
     Active Substance: CHOLECALCIFEROL
  11. DIGOXIN. [Concomitant]
     Active Substance: DIGOXIN
  12. SPIRIVA [Suspect]
     Active Substance: TIOTROPIUM BROMIDE MONOHYDRATE
     Indication: EMPHYSEMA
     Dosage: 1PUFF PER DAY
     Dates: end: 201405
  13. OMEPRAZOLE. [Concomitant]
     Active Substance: OMEPRAZOLE
  14. N-ACETYLCYSTINE [Concomitant]
  15. MUCINEX [Concomitant]
     Active Substance: GUAIFENESIN
  16. VITAMIN C [Concomitant]
     Active Substance: ASCORBIC ACID
  17. HAIR, NAIL + SKIN VITAMIN [Concomitant]
  18. OXYGEN. [Concomitant]
     Active Substance: OXYGEN

REACTIONS (7)
  - Malaise [Recovered/Resolved]
  - Cough [Recovered/Resolved]
  - Pneumothorax [Unknown]
  - Nasopharyngitis [Recovered/Resolved]
  - Dyspnoea exertional [Recovered/Resolved]
  - Prescribed underdose [Unknown]
  - Emphysema [Recovered/Resolved]

NARRATIVE: CASE EVENT DATE: 200807
